FAERS Safety Report 8074702-2 (Version None)
Quarter: 2012Q1

REPORT INFORMATION
  Report Type: 
  Country: None (occurrence: None)
  Receive Date: 20120126
  Receipt Date: 20120123
  Transmission Date: 20120608
  Serious: Yes (Hospitalization)
  Sender: FDA-Public Use
  Company Number: JP-ROCHE-1029982

PATIENT
  Sex: Male
  Weight: 67 kg

DRUGS (10)
  1. ASPIRIN [Suspect]
     Indication: PRODUCT USED FOR UNKNOWN INDICATION
     Route: 048
  2. NORVASC [Concomitant]
     Route: 048
  3. FERROUS CITRATE [Concomitant]
     Route: 048
  4. ALDACTONE [Concomitant]
     Route: 048
  5. FAMOTIDINE [Concomitant]
     Route: 048
     Dates: end: 20111215
  6. MIRCERA [Suspect]
     Indication: NEPHROGENIC ANAEMIA
     Dosage: DOSAGE IS UNCERTAIN.
     Route: 058
     Dates: start: 20111130
  7. ZOLPIDEM [Concomitant]
     Route: 048
  8. LASIX [Concomitant]
     Route: 048
  9. FEBUXOSTAT [Concomitant]
     Route: 048
  10. ADALAT [Concomitant]
     Route: 048

REACTIONS (5)
  - NEPHROGENIC ANAEMIA [None]
  - PLEURAL EFFUSION [None]
  - GENERALISED OEDEMA [None]
  - CONCOMITANT DISEASE AGGRAVATED [None]
  - DUODENAL ULCER HAEMORRHAGE [None]
